FAERS Safety Report 14501788 (Version 5)
Quarter: 2018Q2

REPORT INFORMATION
  Report Type: Spontaneous
  Country: SE (occurrence: SE)
  Receive Date: 20180207
  Receipt Date: 20180613
  Transmission Date: 20180711
  Serious: Yes (Other)
  Sender: FDA-Public Use
  Company Number: PHHY2017SE200459

PATIENT
  Age: 39 Year
  Sex: Female
  Weight: 67 kg

DRUGS (5)
  1. METHOTREXATE. [Suspect]
     Active Substance: METHOTREXATE
     Indication: ANKYLOSING SPONDYLITIS
     Dosage: 10 MG, QW (WEEKLY)
     Route: 048
     Dates: start: 20161116, end: 20170901
  2. REMSIMA [Suspect]
     Active Substance: INFLIXIMAB
     Indication: ANKYLOSING SPONDYLITIS
     Dosage: 200 MG, CYCLIC EVERY 8 WEEKS
     Route: 042
     Dates: start: 20161116, end: 20170215
  3. INFLECTRA [Suspect]
     Active Substance: INFLIXIMAB-DYYB
     Indication: ANKYLOSING SPONDYLITIS
     Dosage: 200 MG, CYCLIC EVERY 8 WEEKS
     Route: 042
     Dates: start: 20170215, end: 20170901
  4. ORUDIS [Concomitant]
     Active Substance: KETOPROFEN
     Dosage: UNK
     Route: 065
     Dates: start: 20170901
  5. ORUDIS [Concomitant]
     Active Substance: KETOPROFEN
     Indication: PRODUCT USED FOR UNKNOWN INDICATION
     Dosage: UNK
     Route: 065
     Dates: start: 20160311, end: 20170901

REACTIONS (2)
  - Autoimmune hepatitis [Recovered/Resolved with Sequelae]
  - Autoimmune hepatitis [Not Recovered/Not Resolved]

NARRATIVE: CASE EVENT DATE: 20170522
